FAERS Safety Report 5405725-7 (Version None)
Quarter: 2007Q3

REPORT INFORMATION
  Report Type: 
  Country: None (occurrence: None)
  Receive Date: 20070806
  Receipt Date: 20070725
  Transmission Date: 20080115
  Serious: Yes (Hospitalization)
  Sender: FDA-Public Use
  Company Number: BE-JNJFOC-20070703207

PATIENT
  Age: 71 Year
  Sex: Female

DRUGS (9)
  1. REMICADE [Suspect]
     Indication: COLITIS ULCERATIVE
     Dosage: TWO INFUSIONS ON UNSPECIFIED DATES.
     Route: 042
  2. SOTALOL HCL [Concomitant]
     Dosage: 160 MG 2 X 3/4 TAB/DAY
  3. VITAMIN E [Concomitant]
  4. ATROMAL [Concomitant]
  5. COMPOSER [Concomitant]
     Dosage: 2 X 15 DROPS PER DAY
  6. CA [Concomitant]
  7. LORAMET [Concomitant]
  8. FOSAMAX [Concomitant]
  9. MARCUMAR [Concomitant]

REACTIONS (2)
  - HAEMATURIA [None]
  - LUPUS-LIKE SYNDROME [None]
